FAERS Safety Report 5085159-8 (Version None)
Quarter: 2006Q3

REPORT INFORMATION
  Report Type: 
  Country: None (occurrence: None)
  Receive Date: 20060720
  Receipt Date: 20050603
  Transmission Date: 20061208
  Serious: Yes (Life-Threatening, Other)
  Sender: FDA-Public Use
  Company Number: 2005069849

PATIENT
  Age: 66 Year
  Sex: Female

DRUGS (2)
  1. CELEBREX [Suspect]
     Indication: ARTHRALGIA
     Dosage: 200 MG (200 MG,1 IN 1 D),ORAL
     Route: 048
     Dates: start: 20040611
  2. MAXZIDE [Concomitant]

REACTIONS (1)
  - LACUNAR INFARCTION [None]
